FAERS Safety Report 9454722 (Version 4)
Quarter: 2014Q1

REPORT INFORMATION
  Report Type: Spontaneous
  Country: US (occurrence: US)
  Receive Date: 20130812
  Receipt Date: 20140122
  Transmission Date: 20141002
  Serious: Yes (Death, Other)
  Sender: FDA-Public Use
  Company Number: US-PFIZER INC-2013229937

PATIENT
  Age: 65 Year
  Sex: Female

DRUGS (3)
  1. REVATIO [Suspect]
     Indication: PULMONARY ARTERIAL HYPERTENSION
     Dosage: 20 MG, 3X/DAY
     Route: 048
     Dates: start: 200904
  2. TRACLEER [Concomitant]
     Indication: PULMONARY HYPERTENSION
     Dosage: 125 MG, 2X/DAY
     Dates: start: 20081028
  3. LASIX [Concomitant]
     Indication: PULMONARY HYPERTENSION
     Dosage: 60 MG, 2X/DAY
     Dates: start: 20080228

REACTIONS (1)
  - Renal failure [Fatal]
